FAERS Safety Report 23157027 (Version 2)
Quarter: 2023Q4

REPORT INFORMATION
  Report Type: Report from Study
  Country: CA (occurrence: CA)
  Receive Date: 20231108
  Receipt Date: 20231211
  Transmission Date: 20240110
  Serious: Yes (Hospitalization)
  Sender: FDA-Public Use
  Company Number: CA-BoehringerIngelheim-2023-BI-255140

PATIENT
  Age: 81 Year
  Sex: Male

DRUGS (1)
  1. OFEV [Suspect]
     Active Substance: NINTEDANIB
     Indication: Idiopathic pulmonary fibrosis
     Route: 048
     Dates: start: 20230806

REACTIONS (6)
  - Ulcer haemorrhage [Recovering/Resolving]
  - Constipation [Recovering/Resolving]
  - Back pain [Recovering/Resolving]
  - Abdominal pain upper [Recovering/Resolving]
  - Abdominal distension [Unknown]
  - Dyspnoea [Recovering/Resolving]

NARRATIVE: CASE EVENT DATE: 20230801
